FAERS Safety Report 14776233 (Version 2)
Quarter: 2018Q2

REPORT INFORMATION
  Report Type: Spontaneous
  Country: CH (occurrence: CH)
  Receive Date: 20180418
  Receipt Date: 20180530
  Transmission Date: 20180711
  Serious: Yes (Life-Threatening, Hospitalization)
  Sender: FDA-Public Use
  Company Number: CH-PFIZER INC-2018158195

PATIENT
  Age: 57 Year
  Sex: Male
  Weight: 60 kg

DRUGS (35)
  1. DIFLUCAN [Concomitant]
     Active Substance: FLUCONAZOLE
     Indication: FUNGAL INFECTION
     Dosage: 200 MG, UNK
     Route: 041
     Dates: start: 20180406, end: 20180408
  2. PERFALGAN [Concomitant]
     Active Substance: ACETAMINOPHEN
     Indication: PAIN
     Dosage: UNK
     Route: 048
  3. METOLAZON [Concomitant]
     Active Substance: METOLAZONE
     Indication: HYPERTENSIVE HEART DISEASE
     Dosage: UNK
     Route: 048
  4. ROSUVASTATIN. [Concomitant]
     Active Substance: ROSUVASTATIN
     Indication: CORONARY ARTERY DISEASE
     Dosage: UNK
     Route: 048
  5. ASPEGIC [Concomitant]
     Active Substance: ASPIRIN DL-LYSINE
     Dosage: UNK
  6. DUROGESIC [Concomitant]
     Active Substance: FENTANYL
     Dosage: UNK
  7. NOVORAPID [Concomitant]
     Active Substance: INSULIN ASPART
     Dosage: UNK
  8. PRIMPERAN [Concomitant]
     Active Substance: METOCLOPRAMIDE HYDROCHLORIDE
     Dosage: UNK
  9. SPIRICORT [Concomitant]
     Active Substance: PREDNISOLONE
     Dosage: UNK
  10. TRANSIPEG /01618701/ [Concomitant]
     Active Substance: POLYETHYLENE GLYCOL 3350\POTASSIUM CHLORIDE\SODIUM BICARBONATE\SODIUM CHLORIDE\SODIUM SULFATE ANHYDROUS
     Dosage: UNK
  11. LISINOPRIL. [Concomitant]
     Active Substance: LISINOPRIL
     Indication: HYPERTENSIVE HEART DISEASE
     Dosage: UNK
     Route: 048
  12. FENIALLERG [Concomitant]
     Dosage: QUESTIONABLE, IN RESERVE
  13. VITALIPID /01314101/ [Concomitant]
     Active Substance: ERGOCALCIFEROL\PHYTONADIONE\RETINOL\TOCOPHEROL
     Dosage: UNK
  14. OXYNORM [Concomitant]
     Active Substance: OXYCODONE HYDROCHLORIDE
     Dosage: QUESTIONABLE, IN RESERVE
  15. HEPARIN BICHSEL [Concomitant]
     Dosage: UNK
  16. TEMESTA /00273201/ [Concomitant]
     Active Substance: LORAZEPAM
     Dosage: UNK
  17. ATROVENT [Concomitant]
     Active Substance: IPRATROPIUM BROMIDE
     Dosage: UNK
  18. KONAKION [Concomitant]
     Active Substance: PHYTONADIONE
     Dosage: UNK
  19. ALDACTONE [Concomitant]
     Active Substance: SPIRONOLACTONE
     Indication: HYPERTENSIVE HEART DISEASE
     Dosage: UNK
     Route: 048
  20. NITRODERM [Concomitant]
     Active Substance: NITROGLYCERIN
     Dosage: QUESTIONABLE, IN RESERVE
  21. SOLUVIT N /01591701/ [Concomitant]
     Active Substance: VITAMINS
     Dosage: UNK
  22. METOPROLOL. [Concomitant]
     Active Substance: METOPROLOL
     Indication: HYPERTENSIVE HEART DISEASE
     Dosage: UNK
     Route: 048
  23. CLEXANE [Concomitant]
     Active Substance: ENOXAPARIN SODIUM
     Dosage: UNK
  24. TAZOBAC [Suspect]
     Active Substance: PIPERACILLIN SODIUM\TAZOBACTAM SODIUM
     Indication: BACTERIAL INFECTION
     Dosage: 4.5 G, THREE TIMES A DAY (3X IN 24 HOURS)
     Route: 041
     Dates: start: 20180318, end: 20180408
  25. MST CONTINUS [Concomitant]
     Active Substance: MORPHINE SULFATE
     Dosage: UNK
  26. SOLU-MEDROL [Concomitant]
     Active Substance: METHYLPREDNISOLONE SODIUM SUCCINATE
     Dosage: UNK
  27. ONDANSETROM /00955301/ [Concomitant]
     Active Substance: ONDANSETRON
     Indication: NAUSEA
     Dosage: QUESTIONABLE, IN RESERVE
     Route: 040
  28. ASPIRIN /00002701/ [Concomitant]
     Active Substance: ASPIRIN
     Dosage: UNK
  29. LIDOCAINE. [Concomitant]
     Active Substance: LIDOCAINE
     Dosage: QUESTIONABLE, IN RESERVE
  30. TAVEGYL [Concomitant]
     Active Substance: CLEMASTINE FUMARATE
     Dosage: UNK
  31. ADDAVEN [Concomitant]
     Active Substance: ELECTROLYTES NOS\MINERALS
     Dosage: UNK
  32. SMOFKABIVEN [Concomitant]
     Active Substance: AMINO ACIDS\DEXTROSE\ELECTROLYTES NOS\SOYBEAN OIL
     Dosage: UNK
  33. PLAVIX [Concomitant]
     Active Substance: CLOPIDOGREL BISULFATE
     Indication: CORONARY ARTERY DISEASE
     Dosage: UNK
     Route: 048
     Dates: start: 20180130
  34. LASIX [Concomitant]
     Active Substance: FUROSEMIDE
     Indication: HYPERTENSIVE HEART DISEASE
     Dosage: UNK
     Route: 048
  35. FOLIC ACID. [Concomitant]
     Active Substance: FOLIC ACID
     Dosage: UNK

REACTIONS (1)
  - Toxic epidermal necrolysis [Recovering/Resolving]

NARRATIVE: CASE EVENT DATE: 20180405
